FAERS Safety Report 12139414 (Version 1)
Quarter: 2016Q1

REPORT INFORMATION
  Report Type: Spontaneous
  Country: JP (occurrence: JP)
  Receive Date: 20160303
  Receipt Date: 20160303
  Transmission Date: 20160526
  Serious: Yes (Hospitalization)
  Sender: FDA-Public Use
  Company Number: JP-009507513-1509JPN007306

PATIENT
  Age: 75 Year
  Sex: Male
  Weight: 59 kg

DRUGS (5)
  1. SANCOBA [Concomitant]
     Active Substance: CYANOCOBALAMIN
     Dosage: DAILY DOSE, FREQUENCY UNKNOWN
     Route: 047
  2. REBETOL [Suspect]
     Active Substance: RIBAVIRIN
     Indication: CHRONIC HEPATITIS C
     Dosage: 600 MG, QD
     Route: 048
     Dates: start: 20150904, end: 20150906
  3. SOVALDI [Suspect]
     Active Substance: SOFOSBUVIR
     Indication: CHRONIC HEPATITIS C
     Dosage: 400 MG, QD
     Route: 048
     Dates: start: 20150904
  4. REBETOL [Suspect]
     Active Substance: RIBAVIRIN
     Dosage: 600 MG, QD, DIVIDED DOSE IN UNKNOWN FREQUENCY
     Route: 048
     Dates: start: 20150909
  5. URSO [Concomitant]
     Active Substance: URSODIOL
     Dosage: 600 DF, QD, POR, IN DIVIDED DOSE FREQUENCY UNKNOWN
     Route: 048

REACTIONS (4)
  - Renal impairment [Unknown]
  - Cystitis [Unknown]
  - Pyrexia [Recovering/Resolving]
  - Urinary tract infection [Recovering/Resolving]

NARRATIVE: CASE EVENT DATE: 2015
